FAERS Safety Report 12578498 (Version 1)
Quarter: 2016Q3

REPORT INFORMATION
  Report Type: Spontaneous
  Country: US (occurrence: None)
  Receive Date: 20160720
  Receipt Date: 20160720
  Transmission Date: 20161109
  Serious: Yes (Hospitalization)
  Sender: FDA-Public Use
  Company Number: None

PATIENT
  Age: 26 Year
  Sex: Male

DRUGS (2)
  1. CLOZAPINE 200MG TEVA [Suspect]
     Active Substance: CLOZAPINE
     Indication: SCHIZOAFFECTIVE DISORDER BIPOLAR TYPE
     Route: 048
     Dates: start: 20160114, end: 20160411
  2. CLOZAPINE 200MG MYLAN [Suspect]
     Active Substance: CLOZAPINE

REACTIONS (2)
  - Aspartate aminotransferase increased [None]
  - Alanine aminotransferase increased [None]

NARRATIVE: CASE EVENT DATE: 20160414
